FAERS Safety Report 11663807 (Version 2)
Quarter: 2015Q4

REPORT INFORMATION
  Report Type: Report from Study
  Country: US (occurrence: US)
  Receive Date: 20151027
  Receipt Date: 20151029
  Transmission Date: 20160304
  Serious: No
  Sender: FDA-Public Use
  Company Number: PHEH2014US024452

PATIENT
  Sex: Female

DRUGS (2)
  1. EXJADE [Suspect]
     Active Substance: DEFERASIROX
     Indication: HAEMOCHROMATOSIS
     Dosage: 1000 MG, QD
     Route: 048
     Dates: end: 201401
  2. EXJADE [Suspect]
     Active Substance: DEFERASIROX
     Indication: HAEMOLYTIC ANAEMIA
     Dosage: UNK
     Route: 065

REACTIONS (3)
  - Dyspnoea exertional [Unknown]
  - Diarrhoea [Unknown]
  - Fatigue [Unknown]
